FAERS Safety Report 8869910 (Version 1)
Quarter: 2012Q4

REPORT INFORMATION
  Report Type: Spontaneous
  Country: US (occurrence: None)
  Receive Date: 20121025
  Receipt Date: 20121025
  Transmission Date: 20130627
  Serious: Yes (Hospitalization)
  Sender: FDA-Public Use
  Company Number: None

PATIENT
  Age: 53 Year
  Sex: Female
  Weight: 50.1 kg

DRUGS (2)
  1. GEMCITABINE [Suspect]
     Indication: PANCREATIC ADENOCARCINOMA METASTATIC
     Dosage: weekly x 2 weeks
     Route: 042
     Dates: start: 20120518, end: 20120928
  2. TL-32711 [Suspect]
     Dosage: weekly x 2 weeks
     Route: 042
     Dates: start: 20120510, end: 20120928

REACTIONS (5)
  - Back pain [None]
  - Abdominal distension [None]
  - Constipation [None]
  - Vomiting [None]
  - Early satiety [None]
